FAERS Safety Report 20466073 (Version 4)
Quarter: 2022Q1

REPORT INFORMATION
  Report Type: Spontaneous
  Country: US (occurrence: US)
  Receive Date: 20220212
  Receipt Date: 20220321
  Transmission Date: 20220424
  Serious: No
  Sender: FDA-Public Use
  Company Number: US-SA-SAC20220205000025

PATIENT
  Age: 51 Year
  Sex: Female

DRUGS (48)
  1. DUPIXENT [Suspect]
     Active Substance: DUPILUMAB
     Indication: Asthma
     Dosage: 300MG, QOW
     Route: 058
     Dates: start: 20190315
  2. MECLIZINE HYDROCHLORIDE [Concomitant]
     Active Substance: MECLIZINE HYDROCHLORIDE
     Dosage: 125MG
  3. ACETYLCYSTEINE [Concomitant]
     Active Substance: ACETYLCYSTEINE
  4. ALBUTEROL\IPRATROPIUM [Concomitant]
     Active Substance: ALBUTEROL\IPRATROPIUM
  5. BENADRYL [Concomitant]
     Active Substance: DIPHENHYDRAMINE HYDROCHLORIDE
  6. DOXEPIN [Concomitant]
     Active Substance: DOXEPIN
  7. HYDROXYCHLOROQUINE SULFATE [Concomitant]
     Active Substance: HYDROXYCHLOROQUINE SULFATE
  8. ESCITALOPRAM OXALATE [Concomitant]
     Active Substance: ESCITALOPRAM OXALATE
  9. LEFLUNOMIDE [Concomitant]
     Active Substance: LEFLUNOMIDE
  10. CUVITRU [Concomitant]
     Active Substance: HUMAN IMMUNOGLOBULIN G
  11. AIMOVIG [Concomitant]
     Active Substance: ERENUMAB-AOOE
  12. CYANOCOBALAMIN [Concomitant]
     Active Substance: CYANOCOBALAMIN
  13. TOPIRAMATE [Concomitant]
     Active Substance: TOPIRAMATE
  14. ATORVASTATIN CALCIUM [Concomitant]
     Active Substance: ATORVASTATIN CALCIUM
  15. EPIPEN [Concomitant]
     Active Substance: EPINEPHRINE
  16. VITAMIN D3 [Concomitant]
     Active Substance: CHOLECALCIFEROL
  17. TIZANIDINE [Concomitant]
     Active Substance: TIZANIDINE
  18. HYDROXYZINE [Concomitant]
     Active Substance: HYDROXYZINE HYDROCHLORIDE
  19. PLAVIX [Concomitant]
     Active Substance: CLOPIDOGREL BISULFATE
  20. RAMIPRIL [Concomitant]
     Active Substance: RAMIPRIL
  21. FUROSEMIDE [Concomitant]
     Active Substance: FUROSEMIDE
  22. BUSPIRONE [Concomitant]
     Active Substance: BUSPIRONE HYDROCHLORIDE
  23. POTASSIUM CHLORIDE [Concomitant]
     Active Substance: POTASSIUM CHLORIDE
  24. LAMOTRIGINE [Concomitant]
     Active Substance: LAMOTRIGINE
     Dosage: 300 MG, QD
  25. GAMMAGARD [Concomitant]
     Active Substance: HUMAN IMMUNOGLOBULIN G
     Dosage: 300MG
  26. PREDNISONE [Concomitant]
     Active Substance: PREDNISONE
  27. DOXYCYCLINE [Concomitant]
     Active Substance: DOXYCYCLINE
     Indication: Sinusitis
  28. DOXYCYCLINE [Concomitant]
     Active Substance: DOXYCYCLINE
     Indication: Ear infection
  29. MAGNESIUM [Concomitant]
     Active Substance: MAGNESIUM
  30. OFLOXACIN [Concomitant]
     Active Substance: OFLOXACIN
     Indication: Sinusitis
  31. OFLOXACIN [Concomitant]
     Active Substance: OFLOXACIN
     Indication: Ear infection
  32. IPRATROPIUM [Concomitant]
     Active Substance: IPRATROPIUM
  33. ALBUTEROL [Concomitant]
     Active Substance: ALBUTEROL
  34. TYLENOL [Concomitant]
     Active Substance: ACETAMINOPHEN
  35. DOXEPIN HCL [Concomitant]
     Active Substance: DOXEPIN HYDROCHLORIDE
  36. SYMBICORT [Concomitant]
     Active Substance: BUDESONIDE\FORMOTEROL FUMARATE DIHYDRATE
  37. LUMIGAN [Concomitant]
     Active Substance: BIMATOPROST
  38. PROAIR HFA [Concomitant]
     Active Substance: ALBUTEROL SULFATE
  39. TIZANIDINE HYDROCHLORIDE [Concomitant]
     Active Substance: TIZANIDINE HYDROCHLORIDE
  40. HYDROXYZINE HYDROCHLORIDE [Concomitant]
     Active Substance: HYDROXYZINE HYDROCHLORIDE
  41. ALPHA LIPOIC ACID [Concomitant]
     Active Substance: .ALPHA.-LIPOIC ACID
  42. SODIUM CHLORIDE [Concomitant]
     Active Substance: SODIUM CHLORIDE
  43. BUSPIRONE HCL [Concomitant]
     Active Substance: BUSPIRONE HYDROCHLORIDE
  44. FLONASE ALLERGY RELIEF [Concomitant]
     Active Substance: FLUTICASONE PROPIONATE
  45. ATROPINE [ATROPINE SULFATE] [Concomitant]
  46. MOMETASONE FUROATE [Concomitant]
     Active Substance: MOMETASONE FUROATE
  47. MECLIZINE [Concomitant]
     Active Substance: MECLIZINE HYDROCHLORIDE
  48. GABAPENTIN [Concomitant]
     Active Substance: GABAPENTIN

REACTIONS (14)
  - Illness [Unknown]
  - Ear infection [Recovered/Resolved]
  - Chest pain [Unknown]
  - Dyspnoea [Unknown]
  - Oxygen saturation decreased [Unknown]
  - Sinusitis [Recovered/Resolved]
  - Palpitations [Unknown]
  - Bronchospasm [Unknown]
  - Influenza [Unknown]
  - Headache [Unknown]
  - Dyspnoea [Unknown]
  - Anxiety [Unknown]
  - Chest pain [Unknown]
  - Product use issue [Unknown]

NARRATIVE: CASE EVENT DATE: 20220101
